FAERS Safety Report 7412467-5 (Version None)
Quarter: 2011Q2

REPORT INFORMATION
  Report Type: 
  Country: None (occurrence: None)
  Receive Date: 20110408
  Receipt Date: 20110408
  Transmission Date: 20111010
  Serious: Yes (Other)
  Sender: FDA-Public Use
  Company Number: None

PATIENT
  Age: 26 Year
  Sex: Female
  Weight: 63.5036 kg

DRUGS (1)
  1. SUBOXONE [Suspect]
     Indication: DRUG DEPENDENCE
     Dosage: 8 MG 2 TIMES A DAY SL
     Route: 060
     Dates: start: 20110111, end: 20110406

REACTIONS (7)
  - APPLICATION SITE ERYTHEMA [None]
  - TONGUE BLISTERING [None]
  - GLOSSODYNIA [None]
  - LYMPHADENOPATHY [None]
  - TENDERNESS [None]
  - APPLICATION SITE IRRITATION [None]
  - APPLICATION SITE VESICLES [None]
